FAERS Safety Report 9395273 (Version 2)
Quarter: 2013Q4

REPORT INFORMATION
  Report Type: Spontaneous
  Country: US (occurrence: US)
  Receive Date: 20130711
  Receipt Date: 20131010
  Transmission Date: 20140711
  Serious: No
  Sender: FDA-Public Use
  Company Number: US-ASTELLAS-2013US007060

PATIENT
  Sex: Female
  Weight: 64 kg

DRUGS (2)
  1. MYRBETRIQ [Suspect]
     Indication: URINARY INCONTINENCE
     Dosage: 25 MG, UID/QD
     Route: 048
     Dates: start: 201304
  2. VESICARE [Suspect]
     Indication: URINARY INCONTINENCE
     Dosage: UNK MG, UNKNOWN/D
     Route: 065
     Dates: start: 201302, end: 201304

REACTIONS (4)
  - Drug ineffective [Unknown]
  - Urine odour abnormal [Unknown]
  - Urinary tract infection [Unknown]
  - Malaise [Unknown]
